FAERS Safety Report 7461672-0 (Version None)
Quarter: 2011Q2

REPORT INFORMATION
  Report Type: 
  Country: None (occurrence: None)
  Receive Date: 20110506
  Receipt Date: 20110421
  Transmission Date: 20111010
  Serious: No
  Sender: FDA-Public Use
  Company Number: US-B.I. PHARMACEUTICALS,INC./RIDGEFIELD-2011-BP-11241BP

PATIENT
  Age: 80 Year
  Sex: Male

DRUGS (9)
  1. NAPROXEN (ALEVE) [Concomitant]
     Route: 048
  2. PRADAXA [Suspect]
     Indication: ATRIAL FIBRILLATION
     Dosage: 300 MG
     Route: 048
     Dates: start: 20110416
  3. DIGOXIN [Concomitant]
     Indication: ATRIAL FIBRILLATION
     Dosage: 0.125 MG
     Dates: start: 20050101
  4. DILTIAZEM [Concomitant]
     Indication: ATRIAL FIBRILLATION
     Dosage: 360 MG
     Route: 048
     Dates: start: 20050101
  5. THYROID TAB [Concomitant]
     Indication: HYPOTHYROIDISM
     Dosage: 120 MG
     Route: 048
     Dates: start: 20010101
  6. ASPIRIN [Concomitant]
     Indication: PROPHYLAXIS
     Dosage: 81 MG
     Route: 048
     Dates: start: 19800101
  7. TESTOSTERONE [Concomitant]
  8. LISINOPRIL [Concomitant]
     Indication: HYPERTENSION
     Route: 048
     Dates: start: 20010101
  9. AVODART [Concomitant]
     Indication: BENIGN PROSTATIC HYPERPLASIA
     Dosage: 0.5 MG
     Route: 048
     Dates: start: 20100101

REACTIONS (3)
  - BURNING SENSATION [None]
  - ODYNOPHAGIA [None]
  - DYSPEPSIA [None]
